FAERS Safety Report 17082426 (Version 1)
Quarter: 2019Q4

REPORT INFORMATION
  Report Type: Spontaneous
  Country: US (occurrence: US)
  Receive Date: 20191127
  Receipt Date: 20191127
  Transmission Date: 20200122
  Serious: Yes (Other)
  Sender: FDA-Public Use
  Company Number: US-NOVOPROD-698175

PATIENT
  Sex: Female

DRUGS (1)
  1. LEVEMIR [Suspect]
     Active Substance: INSULIN DETEMIR
     Indication: DIABETES MELLITUS
     Dosage: UNK
     Route: 058

REACTIONS (8)
  - Diabetes mellitus inadequate control [Unknown]
  - Treatment noncompliance [Unknown]
  - Myocardial infarction [Unknown]
  - Ocular hypertension [Unknown]
  - Blindness unilateral [Unknown]
  - Arterial occlusive disease [Unknown]
  - Visual impairment [Unknown]
  - Optic nerve injury [Unknown]

NARRATIVE: CASE EVENT DATE: 201807
